FAERS Safety Report 18589146 (Version 29)
Quarter: 2023Q2

REPORT INFORMATION
  Report Type: Other
  Country: DE (occurrence: None)
  Receive Date: 20201208
  Receipt Date: 20230511
  Transmission Date: 20230722
  Serious: Yes (Death, Life-Threatening, Hospitalization)
  Sender: FDA-Public Use
  Company Number: DE-ROCHE-2723819

PATIENT
  Age: 49 Year
  Sex: Male
  Weight: 90 kg

DRUGS (39)
  1. EMICIZUMAB [Suspect]
     Active Substance: EMICIZUMAB
     Indication: Haemophilia A with anti factor VIII
     Dosage: DOSE: 150 MG
     Route: 058
     Dates: start: 20200921, end: 20201012
  2. EMICIZUMAB [Suspect]
     Active Substance: EMICIZUMAB
     Dosage: MOST RECENT DOSE PRIOR TO AE 25/SEP/2022
     Route: 058
     Dates: start: 20201019
  3. METAMIZOLE [Concomitant]
     Active Substance: METAMIZOLE
     Indication: Headache
     Route: 048
     Dates: start: 20201211, end: 20220424
  4. METAMIZOLE [Concomitant]
     Active Substance: METAMIZOLE
     Indication: Lymphadenopathy
     Route: 048
     Dates: start: 20220425, end: 20220807
  5. METAMIZOLE [Concomitant]
     Active Substance: METAMIZOLE
     Indication: Lung adenocarcinoma
  6. GRANISETRON [Concomitant]
     Active Substance: GRANISETRON
     Indication: Lung adenocarcinoma
     Route: 042
     Dates: start: 20201230, end: 20211027
  7. GRANISETRON [Concomitant]
     Active Substance: GRANISETRON
     Route: 041
     Dates: start: 20220505, end: 20220615
  8. ENOXAPARIN SODIUM [Concomitant]
     Active Substance: ENOXAPARIN SODIUM
     Indication: Prophylaxis
     Route: 058
     Dates: start: 20211105, end: 20211105
  9. CALCIVIT D [Concomitant]
     Indication: Prophylaxis
     Route: 048
     Dates: start: 20211202, end: 20220425
  10. APIXABAN [Concomitant]
     Active Substance: APIXABAN
     Indication: Ascites
     Route: 048
     Dates: start: 20220705, end: 20220806
  11. APIXABAN [Concomitant]
     Active Substance: APIXABAN
     Route: 048
     Dates: start: 20220808, end: 20220824
  12. METRONIDAZOLE [Concomitant]
     Active Substance: METRONIDAZOLE
     Indication: Ascites
     Route: 041
     Dates: start: 20220807, end: 20220810
  13. SPIRONOLACTONE [Concomitant]
     Active Substance: SPIRONOLACTONE
     Indication: Ascites
     Route: 048
     Dates: start: 20220811, end: 20220826
  14. TORSEMIDE [Concomitant]
     Active Substance: TORSEMIDE
     Indication: Ascites
     Route: 048
     Dates: start: 20220811, end: 20220826
  15. PIPERACILLIN SODIUM\TAZOBACTAM SODIUM [Concomitant]
     Active Substance: PIPERACILLIN SODIUM\TAZOBACTAM SODIUM
     Indication: Acute kidney injury
     Route: 041
     Dates: start: 20220826, end: 20220901
  16. MOVICOL [Concomitant]
     Active Substance: POLYETHYLENE GLYCOL 3350\POTASSIUM CHLORIDE\SODIUM BICARBONATE\SODIUM CHLORIDE
     Indication: Prophylaxis
     Route: 048
     Dates: start: 20220809
  17. DOMPERIDONE [Concomitant]
     Active Substance: DOMPERIDONE
     Indication: Prophylaxis
     Route: 048
     Dates: start: 20220829
  18. CHOLECALCIFEROL [Concomitant]
     Active Substance: CHOLECALCIFEROL
     Indication: Prophylaxis
     Route: 048
     Dates: start: 20220829
  19. LEVOTHYROXINE SODIUM [Concomitant]
     Active Substance: LEVOTHYROXINE SODIUM
     Indication: Prophylaxis
     Route: 048
     Dates: start: 20220830
  20. LEVOTHYROXINE SODIUM [Concomitant]
     Active Substance: LEVOTHYROXINE SODIUM
     Indication: Hypothyroidism
  21. ZOPICLONE [Concomitant]
     Active Substance: ZOPICLONE
     Indication: Lung adenocarcinoma
     Route: 048
     Dates: start: 20220903, end: 20220904
  22. ZOPICLONE [Concomitant]
     Active Substance: ZOPICLONE
     Route: 048
     Dates: start: 20220905
  23. EPOETIN ALFA [Concomitant]
     Active Substance: ERYTHROPOIETIN
     Indication: Acute kidney injury
     Route: 058
     Dates: start: 20220903, end: 20220929
  24. CEFTRIAXONE [Concomitant]
     Active Substance: CEFTRIAXONE
     Indication: Ascites
     Route: 041
     Dates: start: 20220904, end: 20220907
  25. AMPICILLIN [Concomitant]
     Active Substance: AMPICILLIN
     Route: 041
     Dates: start: 20220906
  26. ONDANSETRON [Concomitant]
     Active Substance: ONDANSETRON
     Route: 040
     Dates: start: 20220909
  27. PANTOPRAZOLE [Concomitant]
     Active Substance: PANTOPRAZOLE
     Indication: Prophylaxis
     Route: 048
     Dates: start: 20211108, end: 20211115
  28. PANTOPRAZOLE [Concomitant]
     Active Substance: PANTOPRAZOLE
     Indication: Gastrooesophageal reflux disease
     Route: 040
     Dates: start: 20220827, end: 20220901
  29. PANTOPRAZOLE [Concomitant]
     Active Substance: PANTOPRAZOLE
     Route: 048
     Dates: start: 20220901, end: 20220916
  30. PANTOPRAZOLE [Concomitant]
     Active Substance: PANTOPRAZOLE
     Route: 040
     Dates: start: 20220916, end: 20220917
  31. PANTOPRAZOLE [Concomitant]
     Active Substance: PANTOPRAZOLE
     Route: 040
     Dates: start: 20220918, end: 20220921
  32. PANTOPRAZOLE [Concomitant]
     Active Substance: PANTOPRAZOLE
     Route: 048
     Dates: start: 20220921
  33. BISACODYL [Concomitant]
     Active Substance: BISACODYL
     Indication: Subileus
     Route: 048
     Dates: start: 20220928
  34. AMPHOTERICIN B [Concomitant]
     Active Substance: AMPHOTERICIN B
     Indication: Prophylaxis
     Route: 002
     Dates: start: 20220928, end: 20220929
  35. HYDROMORPHONE [Concomitant]
     Active Substance: HYDROMORPHONE
     Indication: Lung adenocarcinoma
     Route: 048
     Dates: start: 20220811, end: 20220926
  36. HYDROMORPHONE [Concomitant]
     Active Substance: HYDROMORPHONE
     Route: 042
     Dates: start: 20220928, end: 20220930
  37. TAVOR (LORAZEPAM) [Concomitant]
     Active Substance: LORAZEPAM
     Indication: Anxiety
     Route: 048
     Dates: start: 20220928, end: 20220930
  38. CALCIUM CHLORIDE\MAGNESIUM CHLORIDE\POTASSIUM CHLORIDE\SODIUM ACETATE\ [Concomitant]
     Active Substance: CALCIUM CHLORIDE\MAGNESIUM CHLORIDE\POTASSIUM CHLORIDE\SODIUM ACETATE\SODIUM CHLORIDE
     Indication: Hypotension
     Route: 041
     Dates: start: 20220918, end: 20220918
  39. CALCIUM CHLORIDE\MAGNESIUM CHLORIDE\POTASSIUM CHLORIDE\SODIUM ACETATE\ [Concomitant]
     Active Substance: CALCIUM CHLORIDE\MAGNESIUM CHLORIDE\POTASSIUM CHLORIDE\SODIUM ACETATE\SODIUM CHLORIDE
     Route: 041
     Dates: start: 20220920, end: 20220920

REACTIONS (3)
  - Lung adenocarcinoma [Fatal]
  - Seizure [Recovered/Resolved]
  - Headache [Recovered/Resolved]

NARRATIVE: CASE EVENT DATE: 20201126
